FAERS Safety Report 19656999 (Version 1)
Quarter: 2021Q3

REPORT INFORMATION
  Report Type: Spontaneous
  Country: CZ (occurrence: CZ)
  Receive Date: 20210804
  Receipt Date: 20210804
  Transmission Date: 20211014
  Serious: Yes (Other)
  Sender: FDA-Public Use
  Company Number: CZ-MYLANLABS-2021M1048766

PATIENT
  Age: 68 Year
  Sex: Female

DRUGS (9)
  1. IRINOTECAN [Suspect]
     Active Substance: IRINOTECAN
     Indication: RECTOSIGMOID CANCER METASTATIC
     Dosage: FOLFIRI REGIMEN
     Route: 065
     Dates: start: 201709
  2. BEVACIZUMAB. [Concomitant]
     Active Substance: BEVACIZUMAB
     Indication: RECTOSIGMOID CANCER METASTATIC
     Dosage: UNK, CYCLE
     Route: 065
     Dates: start: 201709
  3. LEUCOVORIN                         /00566701/ [Suspect]
     Active Substance: LEUCOVORIN
     Dosage: FUFA REGIMEN; RECEIVED 3 CYCLES
     Route: 065
     Dates: end: 201704
  4. LEUCOVORIN                         /00566701/ [Suspect]
     Active Substance: LEUCOVORIN
     Dosage: FOLFIRI REGIMEN
     Route: 065
     Dates: start: 201709
  5. FLUOROURACIL. [Suspect]
     Active Substance: FLUOROURACIL
     Indication: RECTOSIGMOID CANCER METASTATIC
     Dosage: FOLFOX REGIMEN; RECEIVED 9 CYCLES
     Route: 065
     Dates: start: 201609
  6. OXALIPLATIN. [Suspect]
     Active Substance: OXALIPLATIN
     Indication: RECTOSIGMOID CANCER METASTATIC
     Dosage: FOLFOX REGIMEN; RECEIVED 9 CYCLES
     Route: 065
     Dates: start: 201609
  7. LEUCOVORIN                         /00566701/ [Suspect]
     Active Substance: LEUCOVORIN
     Indication: RECTOSIGMOID CANCER METASTATIC
     Dosage: FOLFOX REGIMEN; RECEIVED 9 CYCLES
     Route: 065
     Dates: start: 201609
  8. FLUOROURACIL. [Suspect]
     Active Substance: FLUOROURACIL
     Dosage: FUFA REGIMEN; RECEIVED 3 CYCLES
     Route: 065
     Dates: end: 201704
  9. FLUOROURACIL. [Suspect]
     Active Substance: FLUOROURACIL
     Dosage: FOLFIRI REGIMEN
     Route: 065
     Dates: start: 201709

REACTIONS (3)
  - Malaise [Unknown]
  - Nausea [Unknown]
  - Neuropathy peripheral [Unknown]
